FAERS Safety Report 8061009-2 (Version None)
Quarter: 2012Q1

REPORT INFORMATION
  Report Type: 
  Country: None (occurrence: None)
  Receive Date: 20120120
  Receipt Date: 20120117
  Transmission Date: 20120608
  Serious: Yes (Death, Other)
  Sender: FDA-Public Use
  Company Number: CHPA2012US001487

PATIENT
  Sex: Female

DRUGS (6)
  1. EXCEDRIN EXTRA STRENGTH CAPLETS [Suspect]
     Indication: PAIN
     Dosage: 2 DF, QD
     Route: 048
  2. EXCEDRIN EXTRA STRENGTH TABLETS [Suspect]
     Indication: PAIN
     Dosage: UNK DF, UNK
     Route: 048
  3. LIPITOR [Concomitant]
     Indication: BLOOD CHOLESTEROL INCREASED
     Dosage: 10 MG, UNK
  4. EXCEDRIN PM CAPLETS [Suspect]
     Indication: INSOMNIA
     Dosage: 2 DF, QHS
     Route: 048
  5. TOPROL-XL [Concomitant]
     Indication: HYPERTENSION
     Dosage: UNK, UNK
  6. EXCEDRIN PM CAPLETS [Suspect]
     Dosage: 2 DF, QHS
     Route: 048

REACTIONS (16)
  - MYOCARDIAL INFARCTION [None]
  - PULSE PRESSURE DECREASED [None]
  - UNRESPONSIVE TO STIMULI [None]
  - BURNING SENSATION [None]
  - CEREBRAL HAEMORRHAGE [None]
  - BRAIN DEATH [None]
  - DYSARTHRIA [None]
  - PAIN [None]
  - BLOOD CHOLESTEROL DECREASED [None]
  - INCORRECT DRUG ADMINISTRATION DURATION [None]
  - NEPHROLITHIASIS [None]
  - CEREBROVASCULAR ACCIDENT [None]
  - DRUG ADMINISTRATION ERROR [None]
  - HYPOAESTHESIA [None]
  - GALLBLADDER DISORDER [None]
  - HEAD DISCOMFORT [None]
